FAERS Safety Report 5776870-1 (Version None)
Quarter: 2008Q2

REPORT INFORMATION
  Report Type: 
  Country: None (occurrence: None)
  Receive Date: 20080618
  Receipt Date: 20080409
  Transmission Date: 20081010
  Serious: No
  Sender: FDA-Public Use
  Company Number: US-ASTRAZENECA-2008UW07151

PATIENT
  Age: 84 Year
  Sex: Female
  Weight: 49 kg

DRUGS (17)
  1. SYMBICORT [Suspect]
     Indication: CHRONIC OBSTRUCTIVE PULMONARY DISEASE
     Dosage: 160 UG
     Route: 055
  2. SYMBICORT [Suspect]
     Indication: OBSTRUCTIVE AIRWAYS DISORDER
     Dosage: 160 UG
     Route: 055
  3. POTASSIUM CHLORIDE [Concomitant]
  4. PROCARDIA [Concomitant]
  5. PLAVIX [Concomitant]
  6. ASPIRIN [Concomitant]
  7. IMDUR [Concomitant]
     Route: 048
  8. NITROGLYCERIN [Concomitant]
     Route: 062
  9. ENAPRIL [Concomitant]
  10. PROZAC [Concomitant]
  11. LASIX [Concomitant]
  12. SPIRIVA [Concomitant]
  13. NITROSTAT [Concomitant]
  14. LIPITOR [Concomitant]
  15. ALBUTEROL [Concomitant]
  16. SYNTHROID [Concomitant]
  17. DARVOCET [Concomitant]

REACTIONS (1)
  - WEIGHT INCREASED [None]
